FAERS Safety Report 8272358-7 (Version None)
Quarter: 2012Q1

REPORT INFORMATION
  Report Type: 
  Country: None (occurrence: None)
  Receive Date: 20120314
  Receipt Date: 20100811
  Transmission Date: 20120608
  Serious: No
  Sender: FDA-Public Use
  Company Number: PHHY2010US53367

PATIENT
  Age: 58 Year
  Sex: Male

DRUGS (4)
  1. KLONOPIN [Concomitant]
  2. FANAPT [Suspect]
     Indication: SCHIZOPHRENIA
     Dosage: 10 MG, BID, ORAL
     Route: 048
     Dates: start: 20100601
  3. TRAZODONE HCL [Concomitant]
  4. CELEXA [Concomitant]

REACTIONS (4)
  - ANXIETY [None]
  - CONSTIPATION [None]
  - FEELINGS OF WORTHLESSNESS [None]
  - INSOMNIA [None]
